FAERS Safety Report 24714329 (Version 1)
Quarter: 2024Q4

REPORT INFORMATION
  Report Type: Spontaneous
  Country: ES (occurrence: ES)
  Receive Date: 20241209
  Receipt Date: 20241209
  Transmission Date: 20250114
  Serious: Yes (Other)
  Sender: SANDOZ
  Company Number: ES-002147023-NVSC2024ES221651

PATIENT
  Age: 60 Year
  Sex: Female

DRUGS (37)
  1. BEDAQUILINE [Suspect]
     Active Substance: BEDAQUILINE
     Indication: Eye infection
     Dosage: UNK
     Route: 065
  2. BEDAQUILINE [Suspect]
     Active Substance: BEDAQUILINE
     Indication: Eye disorder
  3. CEFTAZIDIME [Suspect]
     Active Substance: CEFTAZIDIME
     Indication: Eye disorder
     Dosage: UNK
     Route: 042
  4. CEFTAZIDIME [Suspect]
     Active Substance: CEFTAZIDIME
     Indication: Achromobacter infection
  5. DECADRON (DEXAMETHASONE SODIUM PHOSPHATE) [Suspect]
     Active Substance: DEXAMETHASONE SODIUM PHOSPHATE
     Indication: Conjunctivitis
     Dosage: UNK (OPTHALMIC DROPS)
     Route: 047
  6. DECADRON (DEXAMETHASONE SODIUM PHOSPHATE) [Suspect]
     Active Substance: DEXAMETHASONE SODIUM PHOSPHATE
     Indication: Cellulitis orbital
  7. DECADRON (DEXAMETHASONE SODIUM PHOSPHATE) [Suspect]
     Active Substance: DEXAMETHASONE SODIUM PHOSPHATE
     Indication: Eye disorder
  8. DECADRON (DEXAMETHASONE SODIUM PHOSPHATE) [Suspect]
     Active Substance: DEXAMETHASONE SODIUM PHOSPHATE
     Indication: Mycobacterium abscessus infection
  9. TIGECYCLINE [Suspect]
     Active Substance: TIGECYCLINE
     Indication: Eye infection bacterial
     Dosage: 50 MG, BID
     Route: 042
  10. TIGECYCLINE [Suspect]
     Active Substance: TIGECYCLINE
     Indication: Mycobacterium abscessus infection
  11. TOBRAMYCIN [Suspect]
     Active Substance: TOBRAMYCIN\TOBRAMYCIN SULFATE
     Indication: Conjunctivitis
     Dosage: UNK
     Route: 047
  12. TOBRAMYCIN [Suspect]
     Active Substance: TOBRAMYCIN\TOBRAMYCIN SULFATE
     Indication: Cellulitis orbital
  13. TOBRAMYCIN [Suspect]
     Active Substance: TOBRAMYCIN\TOBRAMYCIN SULFATE
     Indication: Eye disorder
  14. TOBRAMYCIN [Suspect]
     Active Substance: TOBRAMYCIN\TOBRAMYCIN SULFATE
     Indication: Mycobacterium abscessus infection
  15. TRIAMCINOLONE [Suspect]
     Active Substance: TRIAMCINOLONE
     Indication: Mycobacterium abscessus infection
     Dosage: UNK (ADMINISTERED VIA INTRACAVITARY ROUTE)
     Route: 065
  16. TRIAMCINOLONE [Suspect]
     Active Substance: TRIAMCINOLONE
     Indication: Eye disorder
  17. AMIKACIN [Concomitant]
     Active Substance: AMIKACIN
     Indication: Mycobacterium abscessus infection
     Dosage: 750 MILLIGRAM, 12.5 MG/KG
     Route: 042
  18. AMIKACIN [Concomitant]
     Active Substance: AMIKACIN
     Indication: Eye infection bacterial
  19. AMOXICILLIN [Concomitant]
     Active Substance: AMOXICILLIN
     Indication: Eye disorder
     Dosage: UNK
     Route: 065
  20. AMOXICILLIN [Concomitant]
     Active Substance: AMOXICILLIN
     Indication: Mycobacterium abscessus infection
  21. AZITHROMYCIN [Concomitant]
     Active Substance: AZITHROMYCIN
     Indication: Mycobacterium abscessus infection
     Dosage: 500 MG
     Route: 048
  22. AZITHROMYCIN [Concomitant]
     Active Substance: AZITHROMYCIN
     Indication: Eye disorder
  23. CEFOXITIN [Concomitant]
     Active Substance: CEFOXITIN SODIUM
     Indication: Eye disorder
     Dosage: 2 G, Q8H
     Route: 065
  24. CEFOXITIN [Concomitant]
     Active Substance: CEFOXITIN SODIUM
     Indication: Mycobacterium abscessus infection
  25. COTRIMOXAZOLE [Concomitant]
     Active Substance: SULFAMETHOXAZOLE\TRIMETHOPRIM
     Indication: Eye disorder
     Dosage: UNK
     Route: 065
  26. COTRIMOXAZOLE [Concomitant]
     Active Substance: SULFAMETHOXAZOLE\TRIMETHOPRIM
     Indication: Mycobacterium abscessus infection
  27. DOXYCYCLINE [Concomitant]
     Active Substance: DOXYCYCLINE
     Indication: Eye infection bacterial
     Dosage: UNK
     Route: 065
  28. DOXYCYCLINE [Concomitant]
     Active Substance: DOXYCYCLINE
     Indication: Mycobacterium abscessus infection
  29. IMIPENEM [Concomitant]
     Active Substance: IMIPENEM
     Indication: Eye infection bacterial
     Dosage: 1 GRAM, Q8H, 1 G, 3X/DAY
     Route: 042
  30. IMIPENEM [Concomitant]
     Active Substance: IMIPENEM
     Indication: Eye disorder
  31. LEVOFLOXACIN [Concomitant]
     Active Substance: LEVOFLOXACIN
     Indication: Eye disorder
     Dosage: UNK
     Route: 065
  32. LEVOFLOXACIN [Concomitant]
     Active Substance: LEVOFLOXACIN
     Indication: Mycobacterium abscessus infection
  33. LINEZOLID [Concomitant]
     Active Substance: LINEZOLID
     Indication: Eye disorder
     Dosage: 600 MG, BID
     Route: 065
  34. MOXIFLOXACIN [Concomitant]
     Active Substance: MOXIFLOXACIN
     Indication: Eye disorder
     Dosage: 400 MG, QD
     Route: 065
  35. MOXIFLOXACIN [Concomitant]
     Active Substance: MOXIFLOXACIN
     Indication: Mycobacterium abscessus infection
  36. RIFABUTIN [Concomitant]
     Active Substance: RIFABUTIN
     Indication: Eye disorder
     Dosage: 300 MG, QD
     Route: 065
  37. RIFABUTIN [Concomitant]
     Active Substance: RIFABUTIN
     Indication: Mycobacterium abscessus infection

REACTIONS (4)
  - Hepatitis [Unknown]
  - Drug ineffective [Unknown]
  - Dyspepsia [Unknown]
  - Off label use [Unknown]
